FAERS Safety Report 12820650 (Version 1)
Quarter: 2016Q4

REPORT INFORMATION
  Report Type: Spontaneous
  Country: CN (occurrence: CN)
  Receive Date: 20161006
  Receipt Date: 20161006
  Transmission Date: 20170207
  Serious: Yes (Hospitalization)
  Sender: FDA-Public Use
  Company Number: CN-NOVOPROD-512230

PATIENT
  Age: 88 Year
  Sex: Female
  Weight: 53 kg

DRUGS (5)
  1. NOVONORM [Suspect]
     Active Substance: REPAGLINIDE
     Indication: TYPE 2 DIABETES MELLITUS
     Dosage: 1 MG, QD
     Route: 048
  2. NOVONORM [Suspect]
     Active Substance: REPAGLINIDE
     Dosage: 1 MG, TID
     Route: 048
     Dates: start: 20160601, end: 20160602
  3. NOVONORM [Suspect]
     Active Substance: REPAGLINIDE
     Dosage: UNK
     Route: 048
  4. NOVONORM [Suspect]
     Active Substance: REPAGLINIDE
     Dosage: 1 MG, QD
     Route: 048
     Dates: start: 20160530, end: 20160531
  5. GLUCOBAY [Concomitant]
     Active Substance: ACARBOSE
     Indication: TYPE 2 DIABETES MELLITUS
     Dosage: 50 MG, TID
     Route: 048
     Dates: start: 20141216, end: 20160615

REACTIONS (3)
  - Diabetes mellitus inadequate control [Unknown]
  - Hospitalisation [Unknown]
  - Hypoglycaemia [Recovered/Resolved]

NARRATIVE: CASE EVENT DATE: 20160530
